FAERS Safety Report 5416726-7 (Version None)
Quarter: 2007Q3

REPORT INFORMATION
  Report Type: 
  Country: None (occurrence: None)
  Receive Date: 20070816
  Receipt Date: 20070810
  Transmission Date: 20080115
  Serious: Yes (Congenital Anomaly)
  Sender: FDA-Public Use
  Company Number: B0462080A

PATIENT
  Weight: 2.9 kg

DRUGS (3)
  1. LAMICTAL [Suspect]
     Indication: EPILEPSY
     Dosage: 275MG PER DAY
  2. DEPAKENE [Suspect]
     Indication: EPILEPSY
     Dosage: 1250MG PER DAY
  3. FOLIC ACID [Concomitant]
     Indication: PROPHYLAXIS
     Dosage: .4MG PER DAY

REACTIONS (11)
  - CONGENITAL EYELID MALFORMATION [None]
  - CONGENITAL ORAL MALFORMATION [None]
  - DRUG EXPOSURE DURING PREGNANCY [None]
  - DRUG INTERACTION [None]
  - DYSMORPHISM [None]
  - EYE DISORDER [None]
  - FEEDING DISORDER NEONATAL [None]
  - GASTROOESOPHAGEAL REFLUX DISEASE [None]
  - HYPERTONIA NEONATAL [None]
  - TONGUE DISORDER [None]
  - VOMITING [None]
